FAERS Safety Report 19027100 (Version 1)
Quarter: 2021Q1

REPORT INFORMATION
  Report Type: Spontaneous
  Country: TW (occurrence: TW)
  Receive Date: 20210318
  Receipt Date: 20210318
  Transmission Date: 20210420
  Serious: Yes (Other)
  Sender: FDA-Public Use
  Company Number: TW-NOVAST LABORATORIES LTD.-2021NOV000227

PATIENT
  Age: 28 Year
  Sex: Female

DRUGS (7)
  1. PSEUDOEPHEDRINE. [Suspect]
     Active Substance: PSEUDOEPHEDRINE HYDROCHLORIDE
     Indication: WEIGHT DECREASED
     Dosage: UNK
     Route: 065
  2. HYDROCHLOROTHIAZIDE. [Suspect]
     Active Substance: HYDROCHLOROTHIAZIDE
     Indication: WEIGHT DECREASED
     Dosage: UNK
     Route: 065
  3. OXAZOLAM [Suspect]
     Active Substance: OXAZOLAM
     Indication: WEIGHT DECREASED
     Dosage: UNK
     Route: 065
  4. FLUOXETINE [Suspect]
     Active Substance: FLUOXETINE HYDROCHLORIDE
     Indication: WEIGHT DECREASED
     Dosage: UNK
     Route: 065
  5. METFORMIN [Suspect]
     Active Substance: METFORMIN HYDROCHLORIDE
     Indication: WEIGHT DECREASED
     Dosage: UNK
     Route: 065
  6. TRIIODOTHYRONINE [Suspect]
     Active Substance: LIOTHYRONINE SODIUM
     Indication: WEIGHT DECREASED
     Dosage: UNK
     Route: 065
  7. TOPIRAMATE. [Suspect]
     Active Substance: TOPIRAMATE
     Indication: WEIGHT DECREASED
     Dosage: UNK
     Route: 065

REACTIONS (4)
  - Myopathy [Recovered/Resolved]
  - Dyspnoea [Unknown]
  - Decreased appetite [Unknown]
  - Product use in unapproved indication [Unknown]
